FAERS Safety Report 4335177-X (Version None)
Quarter: 2004Q2

REPORT INFORMATION
  Report Type: 
  Country: None (occurrence: None)
  Receive Date: 20040402
  Receipt Date: 20040225
  Transmission Date: 20050107
  Serious: No
  Sender: FDA-Public Use
  Company Number: 235161

PATIENT
  Age: 33 Year
  Sex: Male
  Weight: 99.8 kg

DRUGS (5)
  1. NOVOLOG [Suspect]
     Indication: DIABETES MELLITUS INSULIN-DEPENDENT
     Dosage: 34 IU, QD; SUBCUTANEOUS (SEE IMAGE)
     Route: 058
     Dates: start: 20031101, end: 20040122
  2. NOVOLOG [Suspect]
     Indication: DIABETES MELLITUS INSULIN-DEPENDENT
     Dosage: 34 IU, QD; SUBCUTANEOUS (SEE IMAGE)
     Route: 058
     Dates: start: 20040122
  3. NOVOFINE 30 (NEEDLE) [Concomitant]
  4. LANTUS [Concomitant]
  5. LISINOPRIL [Concomitant]

REACTIONS (1)
  - BLOOD GLUCOSE DECREASED [None]
